FAERS Safety Report 5145841-0 (Version None)
Quarter: 2006Q4

REPORT INFORMATION
  Report Type: 
  Country: None (occurrence: None)
  Receive Date: 20061108
  Receipt Date: 20061026
  Transmission Date: 20070319
  Serious: Yes (Hospitalization)
  Sender: FDA-Public Use
  Company Number: PHRM2006FR02938

PATIENT
  Age: 73 Year
  Sex: Female

DRUGS (2)
  1. COTAREG [Suspect]
     Indication: HYPERTENSION
     Route: 048
     Dates: end: 20060905
  2. BI-TILDIEM [Suspect]
     Route: 048
     Dates: end: 20060905

REACTIONS (10)
  - BLOOD CREATINE PHOSPHOKINASE INCREASED [None]
  - CEREBRAL ATROPHY [None]
  - ELECTROENCEPHALOGRAM ABNORMAL [None]
  - ENCEPHALOPATHY [None]
  - EPILEPSY [None]
  - HYPONATRAEMIA [None]
  - HYPOTENSION [None]
  - NERVOUS SYSTEM DISORDER [None]
  - NUCLEAR MAGNETIC RESONANCE IMAGING ABNORMAL [None]
  - SCAN ABNORMAL [None]
